FAERS Safety Report 6821279-2 (Version None)
Quarter: 2010Q3

REPORT INFORMATION
  Report Type: 
  Country: None (occurrence: None)
  Receive Date: 20100707
  Receipt Date: 20080616
  Transmission Date: 20110219
  Serious: No
  Sender: FDA-Public Use
  Company Number: US-PFIZER INC-2008051010

PATIENT
  Age: 8 Year
  Sex: Female

DRUGS (2)
  1. ZOLOFT [Suspect]
     Route: 048
     Dates: start: 20070901
  2. ZOLOFT [Suspect]
     Route: 048
     Dates: start: 20080401

REACTIONS (1)
  - PHOTOSENSITIVITY REACTION [None]
